FAERS Safety Report 6681926-5 (Version None)
Quarter: 2010Q2

REPORT INFORMATION
  Report Type: 
  Country: None (occurrence: None)
  Receive Date: 20100409
  Receipt Date: 20100329
  Transmission Date: 20101027
  Serious: Yes (Hospitalization)
  Sender: FDA-Public Use
  Company Number: 2010AP000574

PATIENT
  Age: 49 Year
  Sex: Female

DRUGS (1)
  1. LITHIUM CARBONATE [Suspect]
     Dosage: 450 MG,BID

REACTIONS (6)
  - ANTIPSYCHOTIC DRUG LEVEL INCREASED [None]
  - CONSTIPATION [None]
  - DYSARTHRIA [None]
  - HYPERCALCAEMIA [None]
  - HYPOKALAEMIA [None]
  - THERAPEUTIC AGENT TOXICITY [None]
